FAERS Safety Report 24430511 (Version 2)
Quarter: 2024Q4

REPORT INFORMATION
  Report Type: Spontaneous
  Country: GB (occurrence: GB)
  Receive Date: 20241013
  Receipt Date: 20241023
  Transmission Date: 20250115
  Serious: Yes (Other)
  Sender: ADVANZ PHARMA
  Company Number: GB-MLMSERVICE-20240928-PI201627-00270-4

PATIENT

DRUGS (3)
  1. PREDNISOLONE [Suspect]
     Active Substance: PREDNISOLONE
     Indication: Immunosuppressant drug therapy
     Dosage: 40 MG (VARYING DOSES (5?40 MG))
  2. PREDNISOLONE [Suspect]
     Active Substance: PREDNISOLONE
     Dosage: 5 MG (VARYING DOSES (5?40 MG))
  3. SIROLIMUS [Suspect]
     Active Substance: SIROLIMUS
     Indication: Immunosuppressant drug therapy
     Dosage: UNK

REACTIONS (4)
  - Pneumothorax [Recovering/Resolving]
  - Atypical mycobacterial pneumonia [Recovering/Resolving]
  - Mycobacterium chelonae infection [Recovering/Resolving]
  - Skin bacterial infection [Recovering/Resolving]
